FAERS Safety Report 7119596-4 (Version None)
Quarter: 2010Q4

REPORT INFORMATION
  Report Type: 
  Country: None (occurrence: None)
  Receive Date: 20101123
  Receipt Date: 20101115
  Transmission Date: 20110411
  Serious: Yes (Other)
  Sender: FDA-Public Use
  Company Number: US-BAXTER-2010BH013893

PATIENT
  Age: 8 Year
  Sex: Male
  Weight: 73 kg

DRUGS (7)
  1. LACTATED RINGER'S [Suspect]
     Indication: FLUID REPLACEMENT
     Route: 058
     Dates: start: 20100518, end: 20100518
  2. LACTATED RINGER'S [Suspect]
     Indication: OFF LABEL USE
     Route: 058
     Dates: start: 20100518, end: 20100518
  3. LACTATED RINGER'S [Suspect]
     Route: 058
     Dates: start: 20100519, end: 20100519
  4. LACTATED RINGER'S [Suspect]
     Route: 058
     Dates: start: 20100519, end: 20100519
  5. LACTATED RINGER'S [Suspect]
     Route: 058
     Dates: start: 20100521, end: 20100523
  6. LACTATED RINGER'S [Suspect]
     Route: 058
     Dates: start: 20100521, end: 20100523
  7. COTRIM [Concomitant]
     Indication: PROPHYLAXIS
     Route: 048
     Dates: start: 20100518, end: 20100521

REACTIONS (3)
  - INJECTION SITE ABSCESS [None]
  - PSEUDOMONAS TEST POSITIVE [None]
  - SKIN EXFOLIATION [None]
